FAERS Safety Report 5115104-8 (Version None)
Quarter: 2006Q3

REPORT INFORMATION
  Report Type: 
  Country: None (occurrence: None)
  Receive Date: 20060922
  Receipt Date: 20060817
  Transmission Date: 20061208
  Serious: Yes (Hospitalization, Other)
  Sender: FDA-Public Use
  Company Number: 2006104231

PATIENT
  Sex: Female

DRUGS (3)
  1. BEXTRA [Suspect]
     Dosage: ORAL
     Route: 048
     Dates: start: 20030401
  2. CELEBREX [Suspect]
     Dosage: ORAL
     Route: 048
     Dates: start: 19990601
  3. VIOXX [Suspect]
     Dosage: ORAL
     Route: 048
     Dates: start: 19990501

REACTIONS (3)
  - CEREBROVASCULAR ACCIDENT [None]
  - MYOCARDIAL INFARCTION [None]
  - PHARMACEUTICAL PRODUCT COMPLAINT [None]
